FAERS Safety Report 7985298-5 (Version None)
Quarter: 2011Q4

REPORT INFORMATION
  Report Type: 
  Country: None (occurrence: None)
  Receive Date: 20111214
  Receipt Date: 20111209
  Transmission Date: 20120403
  Serious: Yes (Death)
  Sender: FDA-Public Use
  Company Number: 2010SP047416

PATIENT
  Age: 57 Year
  Sex: Male

DRUGS (11)
  1. REBAMIPIDE [Concomitant]
  2. CHINESE HERBAL MEDICINE [Concomitant]
  3. GOODMIN [Concomitant]
  4. MIRTAZAPINE [Suspect]
     Indication: DEPRESSION
     Dosage: 15 MG;QD;PO
     Route: 048
     Dates: start: 20100724, end: 20100826
  5. PAROXETINE HYDROCHLOROTHIAZIDE HYDRATE [Concomitant]
  6. ALPRAZOLAM [Concomitant]
  7. ESTAZOLAM [Concomitant]
  8. FLUNITRAZEPAM [Concomitant]
  9. RABEPRAZOLE SODIUM [Concomitant]
  10. DOMPERIDONE [Concomitant]
  11. ZOLPIDEM [Concomitant]

REACTIONS (10)
  - STRESS AT WORK [None]
  - MIDDLE INSOMNIA [None]
  - CONFUSIONAL STATE [None]
  - DEPRESSION [None]
  - FEELING ABNORMAL [None]
  - FEELING GUILTY [None]
  - DECREASED APPETITE [None]
  - COMPLETED SUICIDE [None]
  - LISTLESS [None]
  - DELUSION [None]
